FAERS Safety Report 12539269 (Version 1)
Quarter: 2016Q3

REPORT INFORMATION
  Report Type: Spontaneous
  Country: US (occurrence: US)
  Receive Date: 20160708
  Receipt Date: 20160708
  Transmission Date: 20161109
  Serious: No
  Sender: FDA-Public Use
  Company Number: US-ASTRAZENECA-2016SE50789

PATIENT
  Age: 877 Month
  Sex: Female
  Weight: 91.6 kg

DRUGS (3)
  1. BYDUREON [Suspect]
     Active Substance: EXENATIDE
     Indication: TYPE 2 DIABETES MELLITUS
     Dosage: 2.0MG INTERMITTENT
     Route: 058
     Dates: start: 201602
  2. REGULAR INSULIN [Concomitant]
     Active Substance: INSULIN NOS
  3. TOUJEO [Concomitant]
     Active Substance: INSULIN GLARGINE
     Indication: TYPE 2 DIABETES MELLITUS
     Route: 058

REACTIONS (6)
  - Intentional product misuse [Unknown]
  - Blood glucose fluctuation [Unknown]
  - Injection site discomfort [Unknown]
  - Decreased appetite [Unknown]
  - Abdominal distension [Unknown]
  - Weight decreased [Unknown]

NARRATIVE: CASE EVENT DATE: 201602
